FAERS Safety Report 20883142 (Version 1)
Quarter: 2022Q2

REPORT INFORMATION
  Report Type: Report from Study
  Country: US (occurrence: None)
  Receive Date: 20220527
  Receipt Date: 20220527
  Transmission Date: 20220720
  Serious: Yes (Other)
  Sender: FDA-Public Use
  Company Number: US-Merck KGaA-E2B_90003518

PATIENT
  Age: 28 Year
  Sex: Female

DRUGS (1)
  1. REBIF [Suspect]
     Active Substance: INTERFERON BETA-1A
     Indication: Multiple sclerosis
     Dosage: REBI-JECT II/MANUAL, REBIF PREFILLED SYRINGE
     Route: 058
     Dates: start: 20151221

REACTIONS (1)
  - Smear cervix abnormal [Unknown]

NARRATIVE: CASE EVENT DATE: 20151201
